FAERS Safety Report 18267838 (Version 4)
Quarter: 2020Q4

REPORT INFORMATION
  Report Type: Spontaneous
  Country: US (occurrence: US)
  Receive Date: 20200915
  Receipt Date: 20201224
  Transmission Date: 20210113
  Serious: Yes (Other)
  Sender: FDA-Public Use
  Company Number: US-SA-2020SA247184

PATIENT

DRUGS (3)
  1. CAPRELSA [Suspect]
     Active Substance: VANDETANIB
     Indication: THYROID CANCER
     Dosage: 200 MG, HS
     Route: 048
     Dates: start: 20200723
  2. CAPRELSA [Suspect]
     Active Substance: VANDETANIB
     Dosage: 300 MG, QD
     Route: 048
     Dates: start: 202008
  3. CAPRELSA [Suspect]
     Active Substance: VANDETANIB
     Dosage: 200 MG, QD
     Route: 048
     Dates: start: 202008

REACTIONS (12)
  - Increased appetite [Unknown]
  - Tumour marker increased [Unknown]
  - Pruritus [Unknown]
  - Weight increased [Unknown]
  - Blood pressure increased [Unknown]
  - Cardiac flutter [Unknown]
  - Acne [Unknown]
  - Dry skin [Unknown]
  - Fatigue [Unknown]
  - Rash [Unknown]
  - Intentional dose omission [Unknown]
  - Frequent bowel movements [Unknown]

NARRATIVE: CASE EVENT DATE: 20200909
